FAERS Safety Report 6155271-0 (Version None)
Quarter: 2009Q2

REPORT INFORMATION
  Report Type: 
  Country: None (occurrence: None)
  Receive Date: 20090410
  Receipt Date: 20090410
  Transmission Date: 20091009
  Serious: No
  Sender: FDA-Public Use
  Company Number: None

PATIENT
  Age: 40 Year
  Sex: Female
  Weight: 98.8842 kg

DRUGS (1)
  1. PROZAC [Suspect]
     Indication: DEPRESSION
     Dosage: 20MG 2/DAY PO
     Route: 048
     Dates: start: 19980412, end: 20090409

REACTIONS (2)
  - DEAFNESS [None]
  - HEARING AID USER [None]
